FAERS Safety Report 7853933-8 (Version None)
Quarter: 2011Q4

REPORT INFORMATION
  Report Type: 
  Country: None (occurrence: None)
  Receive Date: 20111026
  Receipt Date: 20111021
  Transmission Date: 20120403
  Serious: Yes (Hospitalization, Other)
  Sender: FDA-Public Use
  Company Number: US-PFIZER INC-2011056922

PATIENT
  Sex: Female

DRUGS (2)
  1. DILANTIN [Suspect]
     Indication: CONVULSION
     Dosage: 200 MG, 2X/DAY
     Route: 048
  2. DILANTIN [Suspect]
     Dosage: 300 MG, AT BED TIME
     Route: 048
     Dates: start: 20101019, end: 20101101

REACTIONS (1)
  - STEVENS-JOHNSON SYNDROME [None]
